FAERS Safety Report 5497900-0 (Version None)
Quarter: 2007Q4

REPORT INFORMATION
  Report Type: 
  Country: None (occurrence: None)
  Receive Date: 20071018
  Receipt Date: 20060925
  Transmission Date: 20080405
  Serious: Yes (Other)
  Sender: FDA-Public Use
  Company Number: 2006119955

PATIENT
  Sex: Female

DRUGS (2)
  1. NEURONTIN [Suspect]
     Indication: MIGRAINE
  2. NEURONTIN [Suspect]
     Indication: NEUROPATHY PERIPHERAL

REACTIONS (2)
  - DRUG INEFFECTIVE [None]
  - SUICIDE ATTEMPT [None]
